FAERS Safety Report 20855646 (Version 1)
Quarter: 2022Q2

REPORT INFORMATION
  Report Type: Spontaneous
  Country: US (occurrence: None)
  Receive Date: 20220520
  Receipt Date: 20220520
  Transmission Date: 20220721
  Serious: No
  Sender: FDA-Public Use
  Company Number: None

PATIENT
  Age: 37 Year
  Sex: Male
  Weight: 113.4 kg

DRUGS (14)
  1. MEKINIST [Suspect]
     Active Substance: TRAMETINIB DIMETHYL SULFOXIDE
     Indication: Skin cancer
     Dosage: FREQUENCY : DAILY;?
     Route: 048
  2. TAFINLAR [Suspect]
     Active Substance: DABRAFENIB MESYLATE
     Indication: Skin cancer
     Dosage: FREQUENCY : TWICE A DAY;?
     Route: 048
  3. ALBUTEROL [Concomitant]
     Active Substance: ALBUTEROL
  4. BREZTRI [Concomitant]
     Active Substance: BUDESONIDE\FORMOTEROL\GLYCOPYRROLATE
  5. CINQAIR [Concomitant]
     Active Substance: RESLIZUMAB
  6. CLONIDINE [Concomitant]
     Active Substance: CLONIDINE
  7. DUPIXENT [Concomitant]
     Active Substance: DUPILUMAB
  8. FASENRA [Concomitant]
     Active Substance: BENRALIZUMAB
  9. IRBERSARTAN [Concomitant]
  10. LEVOCETIRIZINE [Concomitant]
     Active Substance: LEVOCETIRIZINE
  11. LORAZEPAM [Concomitant]
     Active Substance: LORAZEPAM
  12. METFORMIN [Concomitant]
     Active Substance: METFORMIN HYDROCHLORIDE
  13. MONTELUKAST [Concomitant]
     Active Substance: MONTELUKAST SODIUM
  14. OMEPRAZOLE [Concomitant]
     Active Substance: OMEPRAZOLE

REACTIONS (1)
  - SARS-CoV-2 test positive [None]

NARRATIVE: CASE EVENT DATE: 20220513
